FAERS Safety Report 13383478 (Version 1)
Quarter: 2017Q1

REPORT INFORMATION
  Report Type: Spontaneous
  Country: ES (occurrence: ES)
  Receive Date: 20170329
  Receipt Date: 20170329
  Transmission Date: 20170429
  Serious: Yes (Other)
  Sender: FDA-Public Use
  Company Number: ES-TEVA-752838ISR

PATIENT
  Age: 63 Year
  Sex: Male

DRUGS (1)
  1. ETOPOSIDO TEVAGEN 20 MG/ML CONCENTRATE FOR SOLUTION FOR PERFUSION, 1 V [Suspect]
     Active Substance: ETOPOSIDE
     Indication: LUNG NEOPLASM MALIGNANT
     Route: 042

REACTIONS (2)
  - Blood pressure abnormal [Recovered/Resolved]
  - Erythema [Recovered/Resolved]

NARRATIVE: CASE EVENT DATE: 20170224
